FAERS Safety Report 5991315-4 (Version None)
Quarter: 2008Q4

REPORT INFORMATION
  Report Type: 
  Country: None (occurrence: None)
  Receive Date: 20081211
  Receipt Date: 20081204
  Transmission Date: 20090506
  Serious: Yes (Other)
  Sender: FDA-Public Use
  Company Number: CA-ASTRAZENECA-2008UW26054

PATIENT
  Age: 24 Year
  Sex: Female

DRUGS (2)
  1. ENTOCORT CAPSULES [Suspect]
     Route: 048
     Dates: start: 20080101, end: 20080201
  2. ENTOCORT CAPSULES [Suspect]
     Route: 048
     Dates: start: 20080201, end: 20080426

REACTIONS (5)
  - ANXIETY [None]
  - CUSHING'S SYNDROME [None]
  - MOOD SWINGS [None]
  - PALPITATIONS [None]
  - WEIGHT INCREASED [None]
